FAERS Safety Report 8596282-5 (Version None)
Quarter: 2012Q3

REPORT INFORMATION
  Report Type: 
  Country: None (occurrence: None)
  Receive Date: 20120815
  Receipt Date: 20120806
  Transmission Date: 20120928
  Serious: Yes (Hospitalization)
  Sender: FDA-Public Use
  Company Number: US-ASTRAZENECA-2011SE30617

PATIENT
  Age: 61 Year
  Sex: Female
  Weight: 62.6 kg

DRUGS (11)
  1. TOPROL-XL [Suspect]
     Indication: HYPERTENSION
     Route: 048
     Dates: start: 19990101, end: 20010101
  2. NASACORT AQ [Concomitant]
  3. TOPROL-XL [Suspect]
     Dosage: GENERIC 100 MG, DAILY
     Route: 048
     Dates: start: 20010101
  4. BENICAR [Concomitant]
  5. KLONOPIN [Concomitant]
  6. NORVASC [Concomitant]
  7. SIMETHICONE [Concomitant]
  8. TOPROL-XL [Suspect]
     Dosage: GENERIC 100 MG, DAILY
     Route: 048
     Dates: start: 20010101, end: 20010101
  9. TOPROL-XL [Suspect]
     Route: 048
  10. ZERTEC [Concomitant]
  11. PREVACID [Concomitant]

REACTIONS (8)
  - MALAISE [None]
  - BLOOD PRESSURE INCREASED [None]
  - BLOOD PRESSURE ABNORMAL [None]
  - ARTHROPOD STING [None]
  - URINARY TRACT INFECTION [None]
  - GASTROENTERITIS VIRAL [None]
  - NASAL CONGESTION [None]
  - DRUG INTOLERANCE [None]
